FAERS Safety Report 10021699 (Version 1)
Quarter: 2014Q1

REPORT INFORMATION
  Report Type: Report from Study
  Country: US (occurrence: US)
  Receive Date: 20140319
  Receipt Date: 20140319
  Transmission Date: 20141002
  Serious: Yes (Other)
  Sender: FDA-Public Use
  Company Number: US-BAXTER-2014BAX012596

PATIENT
  Age: 56 Year
  Sex: Female

DRUGS (2)
  1. GAMMAGARD LIQUID [Suspect]
     Indication: IMMUNODEFICIENCY COMMON VARIABLE
     Route: 042
     Dates: start: 201305
  2. GAMMAGARD LIQUID [Suspect]
     Route: 042
     Dates: start: 20140205

REACTIONS (2)
  - Gastrointestinal infection [Recovered/Resolved]
  - Sinusitis [Recovered/Resolved]
